FAERS Safety Report 6766769-6 (Version None)
Quarter: 2010Q2

REPORT INFORMATION
  Report Type: 
  Country: None (occurrence: None)
  Receive Date: 20100611
  Receipt Date: 20100609
  Transmission Date: 20101027
  Serious: Yes (Life-Threatening, Hospitalization)
  Sender: FDA-Public Use
  Company Number: RU-NOVOPROD-309926

PATIENT
  Age: 65 Year
  Sex: Male

DRUGS (2)
  1. NOVOMIX 30 [Suspect]
     Indication: TYPE 2 DIABETES MELLITUS
     Dosage: 40 IU, QD
     Route: 058
     Dates: start: 20060101
  2. DIROTON [Concomitant]
     Indication: HYPERTENSION
     Dosage: UNK
     Dates: start: 20080101

REACTIONS (1)
  - ACUTE MYOCARDIAL INFARCTION [None]
